FAERS Safety Report 8831425 (Version 1)
Quarter: 2012Q4

REPORT INFORMATION
  Report Type: 
  Country: CA (occurrence: CA)
  Receive Date: 20121009
  Receipt Date: 20121009
  Transmission Date: 20130627
  Serious: Yes (Hospitalization)
  Sender: FDA-Public Use
  Company Number: CA-AMGEN-CANSP2012055500

PATIENT
  Age: 80 Year
  Sex: Female
  Weight: 57.6 kg

DRUGS (1)
  1. PROLIA [Suspect]
     Indication: OSTEOPOROSIS
     Dosage: 60 mg, q6mo
     Route: 058
     Dates: start: 20110318

REACTIONS (3)
  - Cerebrovascular accident [Recovered/Resolved]
  - Rib fracture [Recovering/Resolving]
  - Pulmonary embolism [Recovered/Resolved]
